FAERS Safety Report 10090449 (Version 2)
Quarter: 2014Q2

REPORT INFORMATION
  Report Type: Spontaneous
  Country: US (occurrence: US)
  Receive Date: 20140421
  Receipt Date: 20140512
  Transmission Date: 20141212
  Serious: Yes (Hospitalization)
  Sender: FDA-Public Use
  Company Number: US-BAYER-2014-056448

PATIENT
  Age: 43 Year
  Sex: Female

DRUGS (2)
  1. YASMIN [Suspect]
     Indication: VAGINAL HAEMORRHAGE
  2. ZOLOFT [Concomitant]
     Indication: DEPRESSION

REACTIONS (1)
  - Pulmonary embolism [Recovered/Resolved]
